FAERS Safety Report 4975996-X (Version None)
Quarter: 2006Q2

REPORT INFORMATION
  Report Type: 
  Country: None (occurrence: None)
  Receive Date: 20060418
  Receipt Date: 20050816
  Transmission Date: 20061013
  Serious: Yes (Hospitalization, Disabling)
  Sender: FDA-Public Use
  Company Number: US-MERCK-0508USA03089

PATIENT
  Age: 64 Year
  Sex: Male
  Weight: 89 kg

DRUGS (9)
  1. VIOXX [Suspect]
     Indication: ARTHRALGIA
     Route: 048
     Dates: start: 20020526, end: 20040901
  2. ASPIRIN [Concomitant]
     Route: 065
     Dates: end: 20040220
  3. ECOTRIN [Concomitant]
     Route: 048
     Dates: start: 20040220
  4. NAPROSYN [Concomitant]
     Route: 048
  5. NAPROSYN [Concomitant]
     Route: 048
  6. TERAZOSIN HYDROCHLORIDE [Concomitant]
     Route: 048
  7. ZESTRIL [Concomitant]
     Route: 048
  8. ACIPHEX [Concomitant]
     Route: 065
  9. CYCLOBENZAPRINE HYDROCHLORIDE [Concomitant]
     Route: 048

REACTIONS (8)
  - ANGINA UNSTABLE [None]
  - CEREBROVASCULAR DISORDER [None]
  - CHEST PAIN [None]
  - CORONARY ARTERY DISEASE [None]
  - COUGH [None]
  - HEADACHE [None]
  - LUNG DISORDER [None]
  - MENISCUS LESION [None]
